FAERS Safety Report 8363590-2 (Version None)
Quarter: 2012Q2

REPORT INFORMATION
  Report Type: 
  Country: None (occurrence: None)
  Receive Date: 20120516
  Receipt Date: 20120507
  Transmission Date: 20120825
  Serious: Yes (Hospitalization)
  Sender: FDA-Public Use
  Company Number: BE-JNJFOC-20120507712

PATIENT
  Sex: Female
  Weight: 103 kg

DRUGS (2)
  1. REMICADE [Suspect]
     Indication: CROHN'S DISEASE
     Route: 042
     Dates: start: 20031222, end: 20110204
  2. HUMIRA [Concomitant]
     Dates: start: 20110223

REACTIONS (1)
  - HERPES ZOSTER [None]
